FAERS Safety Report 24834451 (Version 2)
Quarter: 2025Q1

REPORT INFORMATION
  Report Type: Spontaneous
  Country: US (occurrence: US)
  Receive Date: 20250113
  Receipt Date: 20250128
  Transmission Date: 20250409
  Serious: No
  Sender: ROCHE
  Company Number: US-ROCHE-10000176984

PATIENT
  Age: 58 Year
  Sex: Male
  Weight: 117.03 kg

DRUGS (1)
  1. XOLAIR [Suspect]
     Active Substance: OMALIZUMAB
     Indication: Asthma
     Route: 058
     Dates: start: 202410

REACTIONS (3)
  - Headache [Unknown]
  - Nerve compression [Unknown]
  - Hypoaesthesia [Unknown]
